FAERS Safety Report 12783449 (Version 1)
Quarter: 2016Q3

REPORT INFORMATION
  Report Type: Spontaneous
  Country: US (occurrence: US)
  Receive Date: 20160927
  Receipt Date: 20160927
  Transmission Date: 20161109
  Serious: Yes (Other)
  Sender: FDA-Public Use
  Company Number: None

PATIENT
  Age: 55 Year
  Sex: Male
  Weight: 72 kg

DRUGS (3)
  1. SAME [Concomitant]
  2. STRATTERA [Suspect]
     Active Substance: ATOMOXETINE HYDROCHLORIDE
     Indication: ATTENTION DEFICIT/HYPERACTIVITY DISORDER
     Route: 048
     Dates: start: 20160818, end: 20160927
  3. DEPLIN [Concomitant]
     Active Substance: LEVOMEFOLATE CALCIUM

REACTIONS (4)
  - Micturition urgency [None]
  - Pollakiuria [None]
  - Urine output decreased [None]
  - Urine flow decreased [None]

NARRATIVE: CASE EVENT DATE: 20160927
